FAERS Safety Report 24784523 (Version 2)
Quarter: 2025Q1

REPORT INFORMATION
  Report Type: Spontaneous
  Country: ES (occurrence: ES)
  Receive Date: 20241227
  Receipt Date: 20250108
  Transmission Date: 20250408
  Serious: Yes (Other)
  Sender: GILEAD
  Company Number: ES-ROCHE-10000148059

PATIENT
  Age: 34 Year
  Sex: Female

DRUGS (32)
  1. AXICABTAGENE CILOLEUCEL [Suspect]
     Active Substance: AXICABTAGENE CILOLEUCEL
     Indication: Triple hit lymphoma
     Route: 065
  2. AXICABTAGENE CILOLEUCEL [Suspect]
     Active Substance: AXICABTAGENE CILOLEUCEL
     Indication: Diffuse large B-cell lymphoma
  3. RITUXIMAB [Suspect]
     Active Substance: RITUXIMAB
     Indication: Triple hit lymphoma
     Route: 065
  4. RITUXIMAB [Suspect]
     Active Substance: RITUXIMAB
     Indication: Diffuse large B-cell lymphoma
     Route: 065
  5. OBINUTUZUMAB [Suspect]
     Active Substance: OBINUTUZUMAB
     Indication: Triple hit lymphoma
     Route: 065
  6. OBINUTUZUMAB [Suspect]
     Active Substance: OBINUTUZUMAB
     Indication: Diffuse large B-cell lymphoma
     Route: 065
  7. POLIVY [Suspect]
     Active Substance: POLATUZUMAB VEDOTIN-PIIQ
     Indication: Triple hit lymphoma
     Route: 065
  8. POLIVY [Suspect]
     Active Substance: POLATUZUMAB VEDOTIN-PIIQ
     Indication: Diffuse large B-cell lymphoma
  9. PREDNISONE [Suspect]
     Active Substance: PREDNISONE
     Indication: Triple hit lymphoma
     Route: 065
  10. PREDNISONE [Suspect]
     Active Substance: PREDNISONE
     Indication: Diffuse large B-cell lymphoma
     Route: 065
  11. CISPLATIN [Suspect]
     Active Substance: CISPLATIN
     Indication: Triple hit lymphoma
     Route: 065
  12. CISPLATIN [Suspect]
     Active Substance: CISPLATIN
     Indication: Diffuse large B-cell lymphoma
     Route: 065
  13. LENALIDOMIDE [Suspect]
     Active Substance: LENALIDOMIDE
     Indication: Triple hit lymphoma
     Route: 065
  14. LENALIDOMIDE [Suspect]
     Active Substance: LENALIDOMIDE
     Indication: Diffuse large B-cell lymphoma
     Route: 065
  15. BENDAMUSTINE [Suspect]
     Active Substance: BENDAMUSTINE
     Indication: Triple hit lymphoma
     Route: 065
  16. BENDAMUSTINE [Suspect]
     Active Substance: BENDAMUSTINE
     Indication: Diffuse large B-cell lymphoma
     Route: 065
  17. ETOPOSIDE PHOSPHATE [Suspect]
     Active Substance: ETOPOSIDE PHOSPHATE
     Indication: Triple hit lymphoma
     Route: 065
  18. ETOPOSIDE PHOSPHATE [Suspect]
     Active Substance: ETOPOSIDE PHOSPHATE
     Indication: Diffuse large B-cell lymphoma
     Route: 065
  19. ONCOVIN [Suspect]
     Active Substance: VINCRISTINE SULFATE
     Indication: Triple hit lymphoma
     Route: 065
  20. ONCOVIN [Suspect]
     Active Substance: VINCRISTINE SULFATE
     Indication: Diffuse large B-cell lymphoma
  21. CYCLOPHOSPHAMIDE [Suspect]
     Active Substance: CYCLOPHOSPHAMIDE
     Indication: Triple hit lymphoma
     Route: 065
  22. CYCLOPHOSPHAMIDE [Suspect]
     Active Substance: CYCLOPHOSPHAMIDE
     Indication: Diffuse large B-cell lymphoma
     Route: 065
  23. EPIRUBICIN [Suspect]
     Active Substance: EPIRUBICIN
     Indication: Triple hit lymphoma
     Route: 065
  24. EPIRUBICIN [Suspect]
     Active Substance: EPIRUBICIN
     Indication: Diffuse large B-cell lymphoma
  25. GEMCITABINE [Suspect]
     Active Substance: GEMCITABINE
     Indication: Triple hit lymphoma
     Route: 065
  26. GEMCITABINE [Suspect]
     Active Substance: GEMCITABINE
     Indication: Diffuse large B-cell lymphoma
     Route: 065
  27. DEXAMETHASONE [Suspect]
     Active Substance: DEXAMETHASONE
     Indication: Triple hit lymphoma
     Route: 065
  28. DEXAMETHASONE [Suspect]
     Active Substance: DEXAMETHASONE
     Indication: Diffuse large B-cell lymphoma
     Route: 065
  29. VENETOCLAX [Suspect]
     Active Substance: VENETOCLAX
     Indication: Triple hit lymphoma
     Route: 065
  30. VENETOCLAX [Suspect]
     Active Substance: VENETOCLAX
     Indication: Diffuse large B-cell lymphoma
     Route: 065
  31. IBRUTINIB [Suspect]
     Active Substance: IBRUTINIB
     Indication: Triple hit lymphoma
     Route: 065
  32. IBRUTINIB [Suspect]
     Active Substance: IBRUTINIB
     Indication: Diffuse large B-cell lymphoma
     Route: 065

REACTIONS (1)
  - Refractory cancer [Unknown]
